FAERS Safety Report 12610321 (Version 1)
Quarter: 2016Q3

REPORT INFORMATION
  Report Type: Spontaneous
  Country: US (occurrence: None)
  Receive Date: 20160729
  Receipt Date: 20160729
  Transmission Date: 20161109
  Serious: Yes (Disabling, Other)
  Sender: FDA-Public Use
  Company Number: None

PATIENT
  Age: 65 Year
  Sex: Female
  Weight: 70.31 kg

DRUGS (21)
  1. VITAMIN D [Concomitant]
     Active Substance: CHOLECALCIFEROL
  2. DICLOFENAC [Concomitant]
     Active Substance: DICLOFENAC
  3. TRIAZOLAM. [Concomitant]
     Active Substance: TRIAZOLAM
  4. PLAIN VITAMINS [Concomitant]
  5. AM-LOAD [Concomitant]
  6. B VITAMINS [Concomitant]
     Active Substance: CYANOCOBALAMIN\DEXPANTHENOL\NIACINAMIDE\PYRIDOXINE HYDROCHLORIDE\RIBOFLAVIN 5^-PHOSPHATE SODIUM\THIAMINE HYDROCHLORIDE\VITAMIN B COMPLEX
  7. DICYCLONINE [Concomitant]
  8. MORPHINE [Concomitant]
     Active Substance: MORPHINE
  9. DULOXETINE. [Concomitant]
     Active Substance: DULOXETINE
  10. AMOXICILLIN. [Concomitant]
     Active Substance: AMOXICILLIN
  11. RECLAST [Suspect]
     Active Substance: ZOLEDRONIC ACID
     Indication: PROPHYLAXIS
     Route: 042
     Dates: start: 20151231, end: 20151231
  12. GENERAL VITAMINS [Concomitant]
  13. PROCHLORPERAZINE. [Concomitant]
     Active Substance: PROCHLORPERAZINE
  14. DIAZEPAM. [Concomitant]
     Active Substance: DIAZEPAM
  15. QUETIAPINE. [Concomitant]
     Active Substance: QUETIAPINE
  16. RECLAST [Suspect]
     Active Substance: ZOLEDRONIC ACID
     Indication: BONE DENSITY DECREASED
     Route: 042
     Dates: start: 20151231, end: 20151231
  17. TRAMADOL. [Concomitant]
     Active Substance: TRAMADOL
  18. OMEPRAZOLE. [Concomitant]
     Active Substance: OMEPRAZOLE
  19. VITAMIN C [Concomitant]
     Active Substance: ASCORBIC ACID
  20. SIMVASTATIN. [Concomitant]
     Active Substance: SIMVASTATIN
  21. LORAZEPAM. [Concomitant]
     Active Substance: LORAZEPAM

REACTIONS (5)
  - Bone pain [None]
  - Fatigue [None]
  - Activities of daily living impaired [None]
  - Pyrexia [None]
  - Infusion site pain [None]

NARRATIVE: CASE EVENT DATE: 20151231
